FAERS Safety Report 9841726 (Version 1)
Quarter: 2014Q1

REPORT INFORMATION
  Report Type: Report from Study
  Country: BR (occurrence: BR)
  Receive Date: 20140124
  Receipt Date: 20140124
  Transmission Date: 20141002
  Serious: Yes (Death, Other)
  Sender: FDA-Public Use
  Company Number: PHHY2014BR008413

PATIENT
  Sex: Female

DRUGS (6)
  1. DIOVAN HCT [Suspect]
     Indication: HYPERTENSION
     Dosage: 2 DF (320MG VALS+12.5MG ), DAILY (DAY AND NIGHT)
     Route: 048
     Dates: end: 2005
  2. ATENOLOL [Suspect]
     Indication: BLOOD PRESSURE
     Dosage: 50 MG, UNK
     Route: 048
  3. ATENOLOL [Suspect]
     Dosage: 25 MG, UNK
     Route: 048
     Dates: end: 2005
  4. STUGERON [Concomitant]
     Dosage: 27 MG, UNK
     Dates: end: 2005
  5. HIGROTON [Concomitant]
     Indication: BLOOD PRESSURE
     Dosage: 50 MG, UNK
     Dates: end: 2005
  6. CAPTOPRIL [Concomitant]
     Indication: BLOOD PRESSURE
     Dosage: 25 MG, UNK
     Dates: end: 2005

REACTIONS (1)
  - Infarction [Fatal]
